FAERS Safety Report 8525652 (Version 3)
Quarter: 2013Q3

REPORT INFORMATION
  Report Type: Spontaneous
  Country: US (occurrence: US)
  Receive Date: 20120423
  Receipt Date: 20130717
  Transmission Date: 20140515
  Serious: Yes (Hospitalization)
  Sender: FDA-Public Use
  Company Number: US-GLAXOSMITHKLINE-A0798100A

PATIENT
  Age: 62 Year
  Sex: Male
  Weight: 193.6 kg

DRUGS (7)
  1. AVANDIA [Suspect]
     Indication: TYPE 2 DIABETES MELLITUS
     Dosage: 4MG PER DAY
     Route: 048
     Dates: start: 200409, end: 200706
  2. AVANDAMET [Suspect]
     Indication: DIABETES MELLITUS
     Dosage: 1TAB TWICE PER DAY
     Route: 048
     Dates: start: 200410, end: 2005
  3. METFORMIN [Concomitant]
  4. DOCUSATE SODIUM [Concomitant]
  5. LEVOTHYROXINE [Concomitant]
  6. OMEPRAZOLE [Concomitant]
  7. ACTOS [Concomitant]

REACTIONS (4)
  - Cardiac failure [Unknown]
  - Myocardial infarction [Unknown]
  - Cardiogenic shock [Unknown]
  - Tumour excision [Unknown]
